FAERS Safety Report 16985581 (Version 4)
Quarter: 2021Q2

REPORT INFORMATION
  Report Type: Spontaneous
  Country: US (occurrence: US)
  Receive Date: 20191101
  Receipt Date: 20210603
  Transmission Date: 20210716
  Serious: Yes (Hospitalization)
  Sender: FDA-Public Use
  Company Number: US-SA-2019SA302109

PATIENT
  Age: 38 Year
  Sex: Male

DRUGS (3)
  1. DUPIXENT [Suspect]
     Active Substance: DUPILUMAB
     Indication: BONE DENSITY ABNORMAL
  2. DUPIXENT [Suspect]
     Active Substance: DUPILUMAB
     Indication: STATUS ASTHMATICUS
     Dosage: 300 MG, QOW
     Route: 058
     Dates: start: 20190803
  3. DUPIXENT [Suspect]
     Active Substance: DUPILUMAB
     Indication: IMMUNODEFICIENCY COMMON VARIABLE
     Dosage: 300 MG, QOW
     Route: 058
     Dates: start: 20190723

REACTIONS (7)
  - Hospitalisation [Unknown]
  - Illness [Unknown]
  - Product use in unapproved indication [Unknown]
  - Unevaluable event [Unknown]
  - Infection [Unknown]
  - Hospitalisation [Unknown]
  - Product use in unapproved indication [Unknown]

NARRATIVE: CASE EVENT DATE: 2019
